FAERS Safety Report 10960241 (Version 1)
Quarter: 2015Q1

REPORT INFORMATION
  Report Type: Spontaneous
  Country: GB (occurrence: GB)
  Receive Date: 20150327
  Receipt Date: 20150327
  Transmission Date: 20150721
  Serious: Yes (Disabling, Other)
  Sender: FDA-Public Use
  Company Number: GB-JNJFOC-20150314182

PATIENT
  Age: 27 Year
  Sex: Female
  Weight: 138 kg

DRUGS (9)
  1. INFLIXIMAB, RECOMBINANT [Suspect]
     Active Substance: INFLIXIMAB
     Indication: PRODUCT USED FOR UNKNOWN INDICATION
     Route: 042
  2. HUMIRA [Suspect]
     Active Substance: ADALIMUMAB
     Indication: CROHN^S DISEASE
     Route: 058
     Dates: start: 2010
  3. OMEPRAZOLE. [Concomitant]
     Active Substance: OMEPRAZOLE
     Indication: PRODUCT USED FOR UNKNOWN INDICATION
     Dosage: 40 (UNITS NOT PROVIDED)
     Route: 065
  4. AMITRIPTYLINE [Concomitant]
     Active Substance: AMITRIPTYLINE
     Indication: PRODUCT USED FOR UNKNOWN INDICATION
     Route: 065
  5. 6-MERCAPTOPURINE ANHYDROUS [Concomitant]
     Indication: CROHN^S DISEASE
     Dosage: 25 (UNITS NOT PROVIDED)
     Route: 048
     Dates: start: 2011
  6. HUMIRA [Suspect]
     Active Substance: ADALIMUMAB
     Indication: CROHN^S DISEASE
     Dosage: 40 (UNITS NOT PROVIDED)
     Route: 058
  7. HUMIRA [Suspect]
     Active Substance: ADALIMUMAB
     Indication: CROHN^S DISEASE
     Dosage: DOSE 160 (UNSPECIFIED) WEEK 0
     Route: 058
     Dates: start: 2012, end: 2012
  8. HUMIRA [Suspect]
     Active Substance: ADALIMUMAB
     Indication: CROHN^S DISEASE
     Dosage: DOSE: 80 (UNITS UNSPECIFIED) WEEK 2
     Route: 058
  9. HUMIRA [Suspect]
     Active Substance: ADALIMUMAB
     Indication: CROHN^S DISEASE
     Dosage: 40 (UNITS NOT PROVIDED)
     Route: 058
     Dates: start: 201106

REACTIONS (11)
  - Pyoderma gangrenosum [Not Recovered/Not Resolved]
  - Blood bicarbonate decreased [Unknown]
  - Glomerular filtration rate decreased [Unknown]
  - Colitis [Unknown]
  - Blood urea decreased [Unknown]
  - Adjusted calcium decreased [Unknown]
  - Red cell distribution width increased [Unknown]
  - Abdominal pain [Unknown]
  - Adverse drug reaction [Unknown]
  - C-reactive protein increased [Unknown]
  - Blood glucose increased [Unknown]

NARRATIVE: CASE EVENT DATE: 201312
